FAERS Safety Report 8591344-0 (Version None)
Quarter: 2012Q3

REPORT INFORMATION
  Report Type: 
  Country: None (occurrence: None)
  Receive Date: 20120730
  Receipt Date: 20120718
  Transmission Date: 20120928
  Serious: Yes (Other)
  Sender: FDA-Public Use
  Company Number: 2011029598

PATIENT
  Age: 46 Year
  Sex: Female
  Weight: 73.0291 kg

DRUGS (11)
  1. HIZENTRA [Suspect]
     Indication: IMMUNODEFICIENCY COMMON VARIABLE
     Dosage: SEE IMAGE
     Dates: start: 20120714
  2. HIZENTRA [Suspect]
     Indication: IMMUNODEFICIENCY COMMON VARIABLE
     Dosage: SEE IMAGE
     Dates: start: 20110817
  3. HIZENTRA [Suspect]
     Indication: IMMUNODEFICIENCY COMMON VARIABLE
     Dosage: SEE IMAGE
     Dates: start: 20100825
  4. L-M-X (LIDOCAINE) [Concomitant]
  5. LORTAB (LORTAB) [Concomitant]
  6. ACETAMINOPHEN [Concomitant]
  7. CENTRUM (DAILY MULTIVITAMIN) [Concomitant]
  8. XANAX [Concomitant]
  9. AMBIEN [Concomitant]
  10. HIZENTRA [Suspect]
  11. DIPHENHYDRAMINE HCL [Concomitant]

REACTIONS (5)
  - WHEEZING [None]
  - ARTHRALGIA [None]
  - URTICARIA [None]
  - CHILLS [None]
  - OEDEMA PERIPHERAL [None]
